FAERS Safety Report 9711254 (Version 1)
Quarter: 2013Q4

REPORT INFORMATION
  Report Type: Spontaneous
  Country: US (occurrence: US)
  Receive Date: 20131126
  Receipt Date: 20131126
  Transmission Date: 20140711
  Serious: No
  Sender: FDA-Public Use
  Company Number: US-BRISTOL-MYERS SQUIBB COMPANY-19051002

PATIENT
  Age: 39 Year
  Sex: Male
  Weight: 90.7 kg

DRUGS (2)
  1. BYDUREON [Suspect]
     Indication: TYPE 1 DIABETES MELLITUS
  2. INSULIN [Concomitant]

REACTIONS (3)
  - Injection site nodule [Not Recovered/Not Resolved]
  - Injection site erythema [Recovering/Resolving]
  - Injection site pain [Unknown]
